FAERS Safety Report 8508848-9 (Version None)
Quarter: 2012Q3

REPORT INFORMATION
  Report Type: 
  Country: None (occurrence: None)
  Receive Date: 20120713
  Receipt Date: 20120708
  Transmission Date: 20120928
  Serious: Yes (Hospitalization, Other)
  Sender: FDA-Public Use
  Company Number: PL-PFIZER INC-2012163570

PATIENT
  Age: 24 Year
  Sex: Female

DRUGS (4)
  1. BLEOMYCIN SULFATE [Suspect]
     Indication: HODGKIN'S DISEASE STAGE II
  2. VINBLASTINE SULFATE [Suspect]
     Indication: HODGKIN'S DISEASE STAGE II
  3. DOXORUBICIN HCL [Suspect]
     Indication: HODGKIN'S DISEASE STAGE II
  4. DACARBAZINE [Suspect]
     Indication: HODGKIN'S DISEASE STAGE II

REACTIONS (6)
  - RENAL FAILURE [None]
  - PNEUMONIA [None]
  - CARDIOPULMONARY FAILURE [None]
  - MULTI-ORGAN FAILURE [None]
  - IMMUNOSUPPRESSION [None]
  - ALTERED STATE OF CONSCIOUSNESS [None]
